FAERS Safety Report 5794807-6 (Version None)
Quarter: 2008Q2

REPORT INFORMATION
  Report Type: 
  Country: None (occurrence: None)
  Receive Date: 20080630
  Receipt Date: 20080623
  Transmission Date: 20081010
  Serious: Yes (Hospitalization)
  Sender: FDA-Public Use
  Company Number: A0734335A

PATIENT
  Age: 76 Year
  Sex: Female

DRUGS (11)
  1. FLOVENT [Suspect]
     Indication: RESPIRATORY TRACT CONGESTION
     Dosage: 1PUFF TWICE PER DAY
     Route: 055
  2. ADVAIR DISKUS 100/50 [Suspect]
     Indication: RESPIRATORY TRACT CONGESTION
     Route: 055
     Dates: start: 20080608
  3. COMBIVENT [Suspect]
     Indication: RESPIRATORY TRACT CONGESTION
     Dosage: 2PUFF TWICE PER DAY
     Dates: start: 20080608
  4. AUGMENTIN '125' [Suspect]
     Indication: RESPIRATORY TRACT CONGESTION
     Route: 048
     Dates: start: 20080608, end: 20080613
  5. SOLU-MEDROL [Suspect]
     Indication: RESPIRATORY TRACT CONGESTION
     Dates: start: 20080608, end: 20080613
  6. MAGNESIUM OXIDE [Concomitant]
  7. POTASSIUM CHLORIDE [Concomitant]
  8. TORSEMIDE [Concomitant]
  9. NEXIUM [Concomitant]
  10. COZAAR [Concomitant]
  11. ASPIRIN [Concomitant]

REACTIONS (7)
  - CHEST DISCOMFORT [None]
  - CORONARY ARTERY OCCLUSION [None]
  - DIZZINESS [None]
  - GINGIVAL PAIN [None]
  - HEART RATE DECREASED [None]
  - HEART VALVE INCOMPETENCE [None]
  - OVERDOSE [None]
